FAERS Safety Report 9287287 (Version 2)
Quarter: 2013Q3

REPORT INFORMATION
  Report Type: Spontaneous
  Country: US (occurrence: US)
  Receive Date: 20130513
  Receipt Date: 20130701
  Transmission Date: 20140515
  Serious: Yes (Hospitalization)
  Sender: FDA-Public Use
  Company Number: US-B.I. PHARMACEUTICALS,INC./RIDGEFIELD-2013-BI-12398BP

PATIENT
  Age: 72 Year
  Sex: Female
  Weight: 79 kg

DRUGS (15)
  1. SPIRIVA [Suspect]
     Indication: CHRONIC OBSTRUCTIVE PULMONARY DISEASE
     Dosage: 18 MCG
     Route: 055
     Dates: start: 2009, end: 20130225
  2. SPIRIVA [Suspect]
     Dosage: 18 MCG
     Route: 055
     Dates: start: 20130318
  3. IPRATROPIUM BROMIDE INHALATION SOLUTION [Concomitant]
     Indication: PULMONARY CONGESTION
     Route: 055
  4. LEVOTHYROXINE [Concomitant]
     Indication: HYPOTHYROIDISM
     Dosage: 25 MCG
     Route: 048
  5. ALBUTEROL [Concomitant]
     Indication: PULMONARY CONGESTION
     Route: 055
  6. NATURALE TEARS [Concomitant]
     Indication: EYE PRURITUS
     Dates: start: 20130408, end: 20130429
  7. NATURALE TEARS [Concomitant]
     Indication: EYE IRRITATION
  8. NATURALE TEARS [Concomitant]
     Indication: LACRIMATION INCREASED
  9. CLEAR EYES [Concomitant]
     Indication: EYE PRURITUS
     Dates: start: 20130408, end: 20130429
  10. CLEAR EYES [Concomitant]
     Indication: EYE IRRITATION
  11. CLEAR EYES [Concomitant]
     Indication: LACRIMATION INCREASED
  12. ZYRTEC [Concomitant]
     Indication: SINUSITIS
     Route: 048
     Dates: start: 20130427
  13. AMIODARONE [Concomitant]
     Indication: ATRIAL FIBRILLATION
     Dosage: 200 MG
     Route: 048
     Dates: start: 2009
  14. OMEPRAZOLE [Concomitant]
     Indication: GASTROOESOPHAGEAL REFLUX DISEASE
     Dosage: 80 MG
     Route: 048
     Dates: start: 2010
  15. ASPIRIN [Concomitant]
     Indication: COAGULOPATHY
     Dosage: 325 MG
     Route: 048

REACTIONS (13)
  - Lung neoplasm malignant [Recovered/Resolved]
  - Vision blurred [Not Recovered/Not Resolved]
  - Cough [Not Recovered/Not Resolved]
  - Oropharyngeal pain [Not Recovered/Not Resolved]
  - Alopecia [Not Recovered/Not Resolved]
  - Dry skin [Not Recovered/Not Resolved]
  - Dry skin [Not Recovered/Not Resolved]
  - Erythema [Not Recovered/Not Resolved]
  - Dry skin [Not Recovered/Not Resolved]
  - Pruritus [Not Recovered/Not Resolved]
  - Skin exfoliation [Not Recovered/Not Resolved]
  - Erythema [Not Recovered/Not Resolved]
  - Dry skin [Not Recovered/Not Resolved]
